FAERS Safety Report 6243828-8 (Version None)
Quarter: 2009Q2

REPORT INFORMATION
  Report Type: 
  Country: None (occurrence: None)
  Receive Date: 20090624
  Receipt Date: 20090617
  Transmission Date: 20091009
  Serious: Yes (Hospitalization)
  Sender: FDA-Public Use
  Company Number: US-GENENTECH-285292

PATIENT
  Sex: Female

DRUGS (4)
  1. BLINDED RITUXIMAB [Suspect]
     Indication: ANTI-NEUTROPHIL CYTOPLASMIC ANTIBODY POSITIVE VASCULITIS
     Dosage: 554 MG, UNK
     Route: 042
     Dates: start: 20050401
  2. RITUXAN [Suspect]
     Indication: ANTI-NEUTROPHIL CYTOPLASMIC ANTIBODY POSITIVE VASCULITIS
     Dosage: 510 MG, UNK
     Route: 042
     Dates: start: 20081202, end: 20090105
  3. CYCLOPHOSPHAMIDE [Suspect]
     Indication: ANTI-NEUTROPHIL CYTOPLASMIC ANTIBODY POSITIVE VASCULITIS
     Dosage: 100 MG, UNK
     Route: 048
     Dates: start: 20050401
  4. AZATHIOPRINE OR PLACEBO [Suspect]
     Indication: ANTI-NEUTROPHIL CYTOPLASMIC ANTIBODY POSITIVE VASCULITIS
     Dosage: 50-100 MG, UNK
     Route: 048
     Dates: start: 20050730

REACTIONS (1)
  - FEBRILE NEUTROPENIA [None]
